FAERS Safety Report 16216718 (Version 3)
Quarter: 2023Q1

REPORT INFORMATION
  Report Type: Spontaneous
  Country: GB (occurrence: GB)
  Receive Date: 20190419
  Receipt Date: 20230313
  Transmission Date: 20230418
  Serious: Yes (Disabling, Other)
  Sender: FDA-Public Use
  Company Number: None

PATIENT
  Age: 46 Year
  Sex: Female
  Weight: 87.99 kg

DRUGS (5)
  1. CIPROFLOXACIN [Suspect]
     Active Substance: CIPROFLOXACIN
     Indication: Pyelonephritis
     Dosage: 1000 MG, QD
     Route: 048
     Dates: start: 20180313, end: 20180323
  2. SERTRALINE [Concomitant]
     Active Substance: SERTRALINE HYDROCHLORIDE
  3. CARBAMAZEPINE [Concomitant]
     Active Substance: CARBAMAZEPINE
  4. BUPRENORPHINE [Concomitant]
     Active Substance: BUPRENORPHINE
  5. OMEPRAZOLE [Concomitant]
     Active Substance: OMEPRAZOLE

REACTIONS (22)
  - Fatigue [Not Recovered/Not Resolved]
  - Joint noise [Unknown]
  - Sensory disturbance [Unknown]
  - Vasodilatation [Not Recovered/Not Resolved]
  - Hypoacusis [Unknown]
  - Feeling abnormal [Unknown]
  - Tendon discomfort [Unknown]
  - Peripheral swelling [Not Recovered/Not Resolved]
  - Blindness [Not Recovered/Not Resolved]
  - Neuropathy peripheral [Not Recovered/Not Resolved]
  - Fine motor skill dysfunction [Unknown]
  - Joint warmth [Not Recovered/Not Resolved]
  - Hypoacusis [Not Recovered/Not Resolved]
  - Paraesthesia [Not Recovered/Not Resolved]
  - Influenza like illness [Unknown]
  - Arthralgia [Not Recovered/Not Resolved]
  - Tenotomy [Unknown]
  - Carpal tunnel syndrome [Unknown]
  - Thyroid disorder [Unknown]
  - Eye disorder [Unknown]
  - General physical health deterioration [Unknown]
  - Tinnitus [Not Recovered/Not Resolved]

NARRATIVE: CASE EVENT DATE: 20180315
